FAERS Safety Report 23263925 (Version 1)
Quarter: 2023Q4

REPORT INFORMATION
  Report Type: Spontaneous
  Country: US (occurrence: US)
  Receive Date: 20231205
  Receipt Date: 20231205
  Transmission Date: 20240110
  Serious: No
  Sender: FDA-Public Use
  Company Number: US-SA-2023SA372108

PATIENT
  Sex: Female

DRUGS (1)
  1. DUPIXENT [Suspect]
     Active Substance: DUPILUMAB
     Indication: Rash
     Dosage: UNKNOWN UNK

REACTIONS (4)
  - Memory impairment [Unknown]
  - Rash macular [Unknown]
  - Road traffic accident [Unknown]
  - Product use in unapproved indication [Unknown]
